FAERS Safety Report 11968539 (Version 1)
Quarter: 2016Q1

REPORT INFORMATION
  Report Type: Spontaneous
  Country: US (occurrence: US)
  Receive Date: 20160128
  Receipt Date: 20160128
  Transmission Date: 20160526
  Serious: No
  Sender: FDA-Public Use
  Company Number: US-JNJFOC-20160117508

PATIENT
  Sex: Female

DRUGS (2)
  1. MENS ROGAINE EXTRA STRENGTH [Suspect]
     Active Substance: MINOXIDIL
     Route: 061
  2. MENS ROGAINE EXTRA STRENGTH [Suspect]
     Active Substance: MINOXIDIL
     Indication: ALOPECIA
     Dosage: EACH NIGHT, A LITTLE LESS THAN HALF A CAP.
     Route: 061
     Dates: start: 2009

REACTIONS (2)
  - Wrong patient received medication [Unknown]
  - Alopecia [Unknown]

NARRATIVE: CASE EVENT DATE: 2009
